FAERS Safety Report 14036546 (Version 1)
Quarter: 2017Q4

REPORT INFORMATION
  Report Type: Spontaneous
  Country: US (occurrence: US)
  Receive Date: 20171003
  Receipt Date: 20171003
  Transmission Date: 20180321
  Serious: No
  Sender: FDA-Public Use
  Company Number: US-ROCHE-1936783

PATIENT
  Age: 61 Year
  Sex: Male
  Weight: 49.7 kg

DRUGS (1)
  1. ZELBORAF [Suspect]
     Active Substance: VEMURAFENIB
     Indication: ANAPLASTIC THYROID CANCER
     Dosage: GASTRIC TUBE INFUSION
     Route: 050
     Dates: start: 201703

REACTIONS (3)
  - Dysphagia [Not Recovered/Not Resolved]
  - Underdose [Unknown]
  - Medication error [Unknown]

NARRATIVE: CASE EVENT DATE: 201703
